FAERS Safety Report 22162023 (Version 1)
Quarter: 2023Q1

REPORT INFORMATION
  Report Type: Spontaneous
  Country: KR (occurrence: KR)
  Receive Date: 20230331
  Receipt Date: 20230331
  Transmission Date: 20230418
  Serious: Yes (Death, Other)
  Sender: FDA-Public Use
  Company Number: KR-BoehringerIngelheim-2023-BI-228555

PATIENT
  Age: 60 Year
  Sex: Male

DRUGS (2)
  1. AFATINIB [Suspect]
     Active Substance: AFATINIB
     Indication: Lung adenocarcinoma
  2. AFATINIB [Suspect]
     Active Substance: AFATINIB
     Indication: EGFR gene mutation

REACTIONS (3)
  - Malignant neoplasm progression [Fatal]
  - Pleural effusion [Fatal]
  - Gene mutation [Unknown]
